FAERS Safety Report 4830702-4 (Version None)
Quarter: 2005Q4

REPORT INFORMATION
  Report Type: 
  Country: None (occurrence: None)
  Receive Date: 20051114
  Receipt Date: 20051103
  Transmission Date: 20060501
  Serious: Yes (Hospitalization, Other)
  Sender: FDA-Public Use
  Company Number: HQWYE393003NOV05

PATIENT
  Age: 68 Year
  Sex: Male

DRUGS (7)
  1. RHINADVIL (IBUPROFEN/PSEUDOEPHEDRINE HYDROCHLORIDE, TABLET) [Suspect]
     Indication: PHARYNGITIS
     Dosage: 2 TABLETS IN THE MORING, 2 TABELTS MIDDAY AND 1 TABLET  IN THE EVENING, ORAL
     Route: 048
     Dates: start: 20050922, end: 20050925
  2. RHINADVIL (IBUPROFEN/PSEUDOEPHEDRINE HYDROCHLORIDE, TABLET) [Suspect]
     Indication: RHINITIS
     Dosage: 2 TABLETS IN THE MORING, 2 TABELTS MIDDAY AND 1 TABLET  IN THE EVENING, ORAL
     Route: 048
     Dates: start: 20050922, end: 20050925
  3. LEVOTHYROX (LEVOTYROXINE SODIUM) [Concomitant]
  4. LANSOPRAZOLE [Concomitant]
  5. FRACTAL (FLUVASTATIN) [Concomitant]
  6. KENZEN (CANDESARTAN CILEXETIL) [Concomitant]
  7. INDOMETHACIN [Concomitant]

REACTIONS (9)
  - ASTHENIA [None]
  - BACK PAIN [None]
  - GRANULOCYTE COUNT INCREASED [None]
  - HEADACHE [None]
  - NEUTROPENIA [None]
  - PRURITUS [None]
  - THERAPY NON-RESPONDER [None]
  - THROMBOCYTOPENIA [None]
  - URTICARIA [None]
